FAERS Safety Report 6468118-X (Version None)
Quarter: 2009Q4

REPORT INFORMATION
  Report Type: 
  Country: None (occurrence: None)
  Receive Date: 20091127
  Receipt Date: 20091111
  Transmission Date: 20100525
  Serious: Yes (Hospitalization)
  Sender: FDA-Public Use
  Company Number: 2009-4772

PATIENT
  Sex: Male

DRUGS (1)
  1. APO-GO AMPOULES (APO-GO) (APOMORPHINE HYDROCHLORIDE) (APOMORPHINE HYDR [Suspect]
     Indication: DRUG USE FOR UNKNOWN INDICATION
     Dosage: (CONTINUOUS), SUBCUTANEOUS
     Route: 058

REACTIONS (3)
  - CIRCULATORY COLLAPSE [None]
  - HYPOTENSION [None]
  - LOSS OF CONSCIOUSNESS [None]
